FAERS Safety Report 5314060-7 (Version None)
Quarter: 2007Q2

REPORT INFORMATION
  Report Type: 
  Country: None (occurrence: None)
  Receive Date: 20070501
  Receipt Date: 20070419
  Transmission Date: 20071010
  Serious: Yes (Other)
  Sender: FDA-Public Use
  Company Number: US-PFIZER INC-2007031712

PATIENT
  Sex: Female
  Weight: 77.1 kg

DRUGS (5)
  1. CELEBREX [Suspect]
     Indication: OSTEOARTHRITIS
  2. CELEBREX [Suspect]
     Indication: MYALGIA
  3. ACTONEL [Suspect]
     Indication: GASTRIC DISORDER
  4. PREVACID [Concomitant]
  5. WARFARIN [Concomitant]

REACTIONS (8)
  - ABDOMINAL PAIN UPPER [None]
  - ANTIPHOSPHOLIPID ANTIBODIES POSITIVE [None]
  - ARTHRALGIA [None]
  - BLOOD VISCOSITY INCREASED [None]
  - CARDIAC SEPTAL DEFECT [None]
  - CEREBROVASCULAR ACCIDENT [None]
  - GASTRIC DISORDER [None]
  - MYALGIA [None]
